FAERS Safety Report 11124684 (Version 1)
Quarter: 2015Q2

REPORT INFORMATION
  Report Type: Spontaneous
  Country: US (occurrence: US)
  Receive Date: 20150520
  Receipt Date: 20150520
  Transmission Date: 20150821
  Serious: Yes (Other)
  Sender: FDA-Public Use
  Company Number: US-NOVOPROD-449339

PATIENT
  Age: 64 Year
  Sex: Male

DRUGS (1)
  1. VICTOZA [Suspect]
     Active Substance: LIRAGLUTIDE
     Indication: TYPE 2 DIABETES MELLITUS
     Dosage: UNK
     Route: 058
     Dates: start: 2015, end: 201504

REACTIONS (7)
  - Pruritus generalised [Not Recovered/Not Resolved]
  - Throat tightness [Recovered/Resolved]
  - Suicidal ideation [Recovered/Resolved]
  - Renal disorder [Recovered/Resolved]
  - Balance disorder [Recovered/Resolved]
  - Heart rate increased [Recovered/Resolved]
  - Skin discolouration [Not Recovered/Not Resolved]
